FAERS Safety Report 8344374-8 (Version None)
Quarter: 2012Q2

REPORT INFORMATION
  Report Type: 
  Country: None (occurrence: None)
  Receive Date: 20120508
  Receipt Date: 20120501
  Transmission Date: 20120825
  Serious: Yes (Life-Threatening, Other)
  Sender: FDA-Public Use
  Company Number: CA-AMGEN-CANSP2012027275

PATIENT
  Age: 62 Year
  Weight: 118 kg

DRUGS (2)
  1. PANTOPRAZOLE [Concomitant]
     Dosage: 40 MG, QD
  2. ENBREL [Suspect]
     Indication: RHEUMATOID ARTHRITIS
     Dosage: 25 MG/ML, Q2WK
     Route: 058

REACTIONS (5)
  - DYSPNOEA [None]
  - WEIGHT DECREASED [None]
  - SMALL CELL LUNG CANCER METASTATIC [None]
  - PAIN IN EXTREMITY [None]
  - DISCOMFORT [None]
